FAERS Safety Report 24319041 (Version 1)
Quarter: 2024Q3

REPORT INFORMATION
  Report Type: Spontaneous
  Country: US (occurrence: US)
  Receive Date: 20240913
  Receipt Date: 20240913
  Transmission Date: 20241016
  Serious: Yes (Other)
  Sender: NEUROCRINE BIOSCIENCES
  Company Number: US-NEUROCRINE BIOSCIENCES INC.-2024NBI08893

PATIENT
  Age: 14 Year
  Sex: Male

DRUGS (2)
  1. INGREZZA [Suspect]
     Active Substance: VALBENAZINE
     Indication: Tardive dyskinesia
     Dosage: 60 MILLIGRAM, UNK
     Route: 065
     Dates: start: 2024, end: 2024
  2. INGREZZA [Suspect]
     Active Substance: VALBENAZINE
     Dosage: 40 MILLIGRAM, UNK
     Route: 065
     Dates: start: 202406

REACTIONS (3)
  - Tourette^s disorder [Unknown]
  - Arthralgia [Unknown]
  - Off label use [Unknown]
